FAERS Safety Report 18953448 (Version 1)
Quarter: 2021Q1

REPORT INFORMATION
  Report Type: Spontaneous
  Country: US (occurrence: US)
  Receive Date: 20210301
  Receipt Date: 20210301
  Transmission Date: 20210420
  Serious: Yes (Death)
  Sender: FDA-Public Use
  Company Number: None

PATIENT
  Age: 66 Year
  Sex: Male

DRUGS (11)
  1. VIMPAT [Concomitant]
     Active Substance: LACOSAMIDE
  2. LEVOTHYROXINE 112 MCG [Concomitant]
     Active Substance: LEVOTHYROXINE
  3. SANTYL 250 U/GRAM [Concomitant]
  4. FLUCONAZOLE 100MG [Concomitant]
     Active Substance: FLUCONAZOLE
  5. SMX/TMP 800/160MG [Concomitant]
  6. TRUVADA [Suspect]
     Active Substance: EMTRICITABINE\TENOFOVIR DISOPROXIL FUMARATE
     Route: 048
  7. GABAPENTIN 400MG [Concomitant]
     Active Substance: GABAPENTIN
  8. INTELENCE [Suspect]
     Active Substance: ETRAVIRINE
     Indication: HIV INFECTION
     Route: 048
  9. ALLOPURINOL 100MG [Concomitant]
     Active Substance: ALLOPURINOL
  10. MEMANTINE. [Concomitant]
     Active Substance: MEMANTINE
  11. CEPHALEXIN 500MG [Concomitant]
     Active Substance: CEPHALEXIN

REACTIONS (1)
  - Death [None]

NARRATIVE: CASE EVENT DATE: 20210226
